FAERS Safety Report 5590871-8 (Version None)
Quarter: 2007Q4

REPORT INFORMATION
  Report Type: 
  Country: None (occurrence: None)
  Receive Date: 20071214
  Receipt Date: 20070108
  Transmission Date: 20080405
  Serious: Yes (Hospitalization)
  Sender: FDA-Public Use
  Company Number: S07-USA-00075-01

PATIENT
  Age: 66 Year
  Sex: Female

DRUGS (9)
  1. NAMENDA [Suspect]
     Indication: APHASIA
     Dosage: 10 MG BID PO
     Route: 048
     Dates: start: 20061201, end: 20070102
  2. NAMENDA [Suspect]
     Indication: APHASIA
     Dosage: 5 MG QD PO
     Route: 048
     Dates: start: 20061101, end: 20060101
  3. NAMENDA [Suspect]
     Indication: APHASIA
     Dosage: 5 MG BID PO
     Route: 048
     Dates: start: 20060101, end: 20061201
  4. NAMENDA [Suspect]
     Indication: APHASIA
     Dosage: 15 MG QD PO
     Route: 048
     Dates: start: 20061201, end: 20061201
  5. NAMENDA [Suspect]
     Indication: APHASIA
     Dosage: 5 MG BID PO
     Route: 048
     Dates: start: 20070103, end: 20070101
  6. NAMENDA [Suspect]
     Indication: APHASIA
     Dosage: 10 MG BID PO
     Route: 048
     Dates: start: 20070101
  7. METOPROLOL TARTRATE [Suspect]
     Indication: HYPERTENSION
     Dates: end: 20070101
  8. LEXAPRO [Concomitant]
  9. ARICEPT [Concomitant]

REACTIONS (3)
  - FATIGUE [None]
  - TREMOR [None]
  - URINARY TRACT INFECTION [None]
